FAERS Safety Report 5835793-X (Version None)
Quarter: 2008Q3

REPORT INFORMATION
  Report Type: 
  Country: None (occurrence: None)
  Receive Date: 20080806
  Receipt Date: 20080731
  Transmission Date: 20090109
  Serious: Yes (Hospitalization)
  Sender: FDA-Public Use
  Company Number: US-ALLERGAN-0809410US

PATIENT
  Sex: Female

DRUGS (9)
  1. BOTOX [Suspect]
     Indication: MIGRAINE
     Dosage: UNK, SINGLE
     Route: 030
     Dates: start: 20080401, end: 20080401
  2. SYNTHROID [Concomitant]
  3. NORVASC [Concomitant]
  4. RYTHMOL [Concomitant]
  5. MICARDIS [Concomitant]
  6. MEMESTINE [Concomitant]
  7. AMBIEN [Concomitant]
  8. LIPITOR [Concomitant]
  9. BONIVA [Concomitant]

REACTIONS (1)
  - RESPIRATORY DISTRESS [None]
